FAERS Safety Report 11153386 (Version 2)
Quarter: 2015Q2

REPORT INFORMATION
  Report Type: Spontaneous
  Country: BR (occurrence: BR)
  Receive Date: 20150602
  Receipt Date: 20150619
  Transmission Date: 20150821
  Serious: Yes (Hospitalization, Other)
  Sender: FDA-Public Use
  Company Number: CHPA2015BR005375

PATIENT
  Age: 70 Year
  Sex: Female
  Weight: 60 kg

DRUGS (2)
  1. DIOVAN [Suspect]
     Active Substance: VALSARTAN
     Indication: HYPERTENSION
     Dosage: 2 DF, QD
     Route: 048
     Dates: start: 1995, end: 2000
  2. CATAFLAMPRO XT EMUGEL [Suspect]
     Active Substance: DICLOFENAC DIETHYLAMINE
     Indication: MUSCULOSKELETAL PAIN
     Dosage: UNK, 2 TO 3 TIMES DAILY
     Route: 061
     Dates: start: 201504

REACTIONS (5)
  - Abasia [Recovering/Resolving]
  - Drug ineffective [Unknown]
  - Carotid artery occlusion [Recovering/Resolving]
  - Osteopenia [Recovering/Resolving]
  - Hypersensitivity [Recovered/Resolved]

NARRATIVE: CASE EVENT DATE: 20150328
